FAERS Safety Report 26185448 (Version 1)
Quarter: 2025Q4

REPORT INFORMATION
  Report Type: Spontaneous
  Country: US (occurrence: US)
  Receive Date: 20251222
  Receipt Date: 20251222
  Transmission Date: 20260118
  Serious: Yes (Hospitalization, Other)
  Sender: CELLTRION
  Company Number: US-CELLTRION INC.-2025US019696

PATIENT

DRUGS (7)
  1. RITUXIMAB [Suspect]
     Active Substance: RITUXIMAB
     Indication: Anti-neutrophil cytoplasmic antibody positive vasculitis
     Dosage: TWO 1000 MG I.V. DOSES SEPARATED BY 2 TO 4 WEEKS FOR INDUCTION
     Route: 042
  2. RITUXIMAB [Suspect]
     Active Substance: RITUXIMAB
     Dosage: TWO 1000 MG I.V. DOSES SEPARATED BY 2 TO 4 WEEKS FOR INDUCTION
     Route: 042
  3. RITUXIMAB [Suspect]
     Active Substance: RITUXIMAB
     Dosage: SINGLE 1000 MG I.V.DOSE EVERY 4 TO 6 MONTHS TO START
     Route: 042
  4. CYCLOPHOSPHAMIDE [Concomitant]
     Active Substance: CYCLOPHOSPHAMIDE
     Dosage: MULTIPLE CYCLES OF CYC, MMF AND AZA FOR MANY YEARS
  5. MYCOPHENOLATE MOFETIL [Concomitant]
     Active Substance: MYCOPHENOLATE MOFETIL
     Dosage: MULTIPLE CYCLES OF CYC, MMF AND AZA FOR MANY YEARS
  6. AZATHIOPRINE [Concomitant]
     Active Substance: AZATHIOPRINE
     Dosage: MULTIPLE CYCLES OF CYC, MMF AND AZA FOR MANY YEARS
  7. PREDNISONE [Concomitant]
     Active Substance: PREDNISONE
     Indication: Steroid therapy
     Dosage: PREDNISONE }= 5 MG/D OR EQUIVALENT FOR } 1 YEAR

REACTIONS (3)
  - Infection [Unknown]
  - Infection [Unknown]
  - B-lymphocyte count decreased [Unknown]
